FAERS Safety Report 8086120-1 (Version None)
Quarter: 2012Q1

REPORT INFORMATION
  Report Type: 
  Country: None (occurrence: None)
  Receive Date: 20120128
  Receipt Date: 20110415
  Transmission Date: 20120608
  Serious: No
  Sender: FDA-Public Use
  Company Number: US-ABBOTT-11P-163-0719064-00

PATIENT
  Sex: Female
  Weight: 64.922 kg

DRUGS (2)
  1. HUMIRA [Suspect]
     Indication: RHEUMATOID ARTHRITIS
     Dates: start: 20101001
  2. HUMIRA [Suspect]
     Indication: OSTEOARTHRITIS

REACTIONS (2)
  - INJECTION SITE PAIN [None]
  - INJECTION SITE REACTION [None]
